FAERS Safety Report 13699139 (Version 1)
Quarter: 2017Q2

REPORT INFORMATION
  Report Type: Spontaneous
  Country: US (occurrence: US)
  Receive Date: 20170628
  Receipt Date: 20170628
  Transmission Date: 20170830
  Serious: No
  Sender: FDA-Public Use
  Company Number: GXBR2017US001401

PATIENT
  Sex: Female

DRUGS (4)
  1. ALPRAZOLAM. [Concomitant]
     Active Substance: ALPRAZOLAM
     Dosage: UNK DF, UNK
  2. VAGIFEM [Concomitant]
     Active Substance: ESTRADIOL
  3. LEVOTHYROXINE. [Concomitant]
     Active Substance: LEVOTHYROXINE
     Dosage: UNK DF, UNK
  4. BIMATOPROST. [Suspect]
     Active Substance: BIMATOPROST
     Indication: GROWTH OF EYELASHES
     Dosage: 1 GTT, QHS
     Route: 047
     Dates: start: 20170327, end: 20170331

REACTIONS (4)
  - Vision blurred [Recovering/Resolving]
  - Eye pruritus [Recovering/Resolving]
  - Dry eye [Recovering/Resolving]
  - Visual impairment [Recovering/Resolving]
